FAERS Safety Report 8860683 (Version 1)
Quarter: 2012Q4

REPORT INFORMATION
  Report Type: 
  Country: US (occurrence: US)
  Receive Date: 20121025
  Receipt Date: 20121025
  Transmission Date: 20130627
  Serious: No
  Sender: FDA-Public Use
  Company Number: US-AMGEN-USASP2012015064

PATIENT
  Age: 61 Year
  Sex: Male

DRUGS (7)
  1. ENBREL [Suspect]
     Indication: PRODUCT USED FOR UNKNOWN INDICATION
     Dosage: 50 mg, qwk
     Route: 058
  2. MULTIVITAMIN                       /00097801/ [Concomitant]
  3. SERTRALINE [Concomitant]
     Dosage: 25 mg, UNK
  4. ONDANSETRON [Concomitant]
     Dosage: 4 mg, UNK
  5. PEGASYS [Concomitant]
     Dosage: 180 UNK, UNK
  6. RIBAPAK [Concomitant]
     Dosage: UNK UNK, qd
  7. IBUPROFEN [Concomitant]
     Dosage: 200 mg, UNK

REACTIONS (1)
  - Tremor [Unknown]
